FAERS Safety Report 23841472 (Version 1)
Quarter: 2024Q2

REPORT INFORMATION
  Report Type: Spontaneous
  Country: US (occurrence: US)
  Receive Date: 20240510
  Receipt Date: 20240510
  Transmission Date: 20240716
  Serious: No
  Sender: FDA-Public Use
  Company Number: US-DRL-USA-LIT/USA/24/0006872

PATIENT
  Sex: Female

DRUGS (1)
  1. NORETHINDRONE ACETATE [Suspect]
     Active Substance: NORETHINDRONE ACETATE
     Indication: Uterine haemorrhage

REACTIONS (3)
  - Nausea [Unknown]
  - Headache [Unknown]
  - Product use in unapproved indication [Unknown]
